FAERS Safety Report 8326283-3 (Version None)
Quarter: 2012Q2

REPORT INFORMATION
  Report Type: 
  Country: None (occurrence: None)
  Receive Date: 20120501
  Receipt Date: 20120418
  Transmission Date: 20120825
  Serious: Yes (Death)
  Sender: FDA-Public Use
  Company Number: US-MYLANLABS-2010S1015656

PATIENT
  Age: 54 Year
  Sex: Female
  Weight: 75.75 kg

DRUGS (13)
  1. FENTANYL-100 [Suspect]
     Indication: BACK PAIN
     Dosage: CHANGE EVERY 3 DAYS
     Route: 062
     Dates: end: 20080924
  2. AMLODIPINE BESYLATE [Concomitant]
  3. ATIVAN [Concomitant]
  4. PROMETHAZINE [Concomitant]
     Indication: VOMITING
     Dosage: THREE TIMES A DAY
  5. IBUPROFEN [Concomitant]
  6. CARISOPRODOL [Concomitant]
     Indication: PAIN
     Dosage: EVERY 6 HOURS
  7. ALPRAZOLAM [Concomitant]
  8. ETODOLAC [Concomitant]
     Route: 048
  9. BONIVA [Concomitant]
  10. OMEPRAZOLE [Concomitant]
  11. HYDROCODONE BITARTRATE AND ACETAMINOPHEN [Suspect]
     Indication: BACK PAIN
     Dosage: EVERY 4-6 HOURS AS NEEDED FOR PAIN
  12. TRIAMTERENE AND HYDROCHLOROTHIAZIDE [Concomitant]
     Dosage: 25MG/37.5MG
  13. CYMBALTA [Concomitant]

REACTIONS (5)
  - HYPERTENSION [None]
  - TOXICITY TO VARIOUS AGENTS [None]
  - DIZZINESS [None]
  - HYPOAESTHESIA [None]
  - OVERDOSE [None]
